FAERS Safety Report 17244118 (Version 1)
Quarter: 2020Q1

REPORT INFORMATION
  Report Type: Spontaneous
  Country: US (occurrence: US)
  Receive Date: 20200107
  Receipt Date: 20200107
  Transmission Date: 20200409
  Serious: No
  Sender: FDA-Public Use
  Company Number: US-009507513-2001USA001539

PATIENT
  Age: 20 Year
  Sex: Female
  Weight: 181.41 kg

DRUGS (1)
  1. NEXPLANON [Suspect]
     Active Substance: ETONOGESTREL
     Indication: CONTRACEPTION
     Dosage: LEFT ARM-IMPLANT, 3 YEARS
     Route: 059
     Dates: start: 201609, end: 201909

REACTIONS (3)
  - Amenorrhoea [Not Recovered/Not Resolved]
  - Depression [Recovered/Resolved]
  - Weight increased [Recovered/Resolved]

NARRATIVE: CASE EVENT DATE: 201609
